FAERS Safety Report 22665609 (Version 2)
Quarter: 2023Q4

REPORT INFORMATION
  Report Type: Spontaneous
  Country: US (occurrence: US)
  Receive Date: 20230703
  Receipt Date: 20231228
  Transmission Date: 20240110
  Serious: No
  Sender: FDA-Public Use
  Company Number: US-BAYER-2023A090981

PATIENT
  Age: 57 Year
  Sex: Female

DRUGS (1)
  1. MIRENA [Suspect]
     Active Substance: LEVONORGESTREL
     Dosage: 20?G/DAY
     Route: 015
     Dates: start: 20230609

REACTIONS (5)
  - Uterine spasm [None]
  - Headache [None]
  - Abnormal dreams [None]
  - Skin discolouration [None]
  - Eye colour change [None]

NARRATIVE: CASE EVENT DATE: 20230621
